FAERS Safety Report 15893911 (Version 3)
Quarter: 2021Q4

REPORT INFORMATION
  Report Type: Report from Study
  Country: CN (occurrence: CN)
  Receive Date: 20190131
  Receipt Date: 20211026
  Transmission Date: 20220303
  Serious: Yes (Hospitalization)
  Sender: FDA-Public Use
  Company Number: CN-ROCHE-2251687

PATIENT
  Age: 43 Year
  Sex: Female
  Weight: 62.5 kg

DRUGS (21)
  1. ADO-TRASTUZUMAB EMTANSINE [Suspect]
     Active Substance: ADO-TRASTUZUMAB EMTANSINE
     Indication: Breast cancer
     Dosage: DATE OF MOST RECENT DOSE OF TRASTUZUMAB EMTANSINE PRIOR TO SAE ONSET 25/DEC/2018: 153.6 MG
     Route: 042
     Dates: start: 20180827
  2. IBUPROFEN SUSTAINED RELEASE [Concomitant]
     Dates: start: 20180919
  3. DICLOFENAC SODIUM [Concomitant]
     Active Substance: DICLOFENAC SODIUM
     Dates: start: 20181106
  4. ZOLEDRONIC ACID [Concomitant]
     Active Substance: ZOLEDRONIC ACID
     Dates: start: 20181226, end: 20181226
  5. SODIUM CHLORIDE [Concomitant]
     Active Substance: SODIUM CHLORIDE
     Dates: start: 20190115, end: 20190121
  6. AVELOX [Concomitant]
     Active Substance: MOXIFLOXACIN HYDROCHLORIDE
     Dates: start: 20190116, end: 20190116
  7. DEXTROSE [Concomitant]
     Active Substance: DEXTROSE
     Dates: start: 20190116, end: 20190117
  8. ALBUMIN HUMAN [Concomitant]
     Active Substance: ALBUMIN HUMAN
     Dates: start: 20190116, end: 20190121
  9. LIDOCAINE HYDROCHLORIDE [Concomitant]
     Active Substance: LIDOCAINE HYDROCHLORIDE
     Dates: start: 20190116, end: 20190116
  10. NOREPINEPHRINE BITARTRATE [Concomitant]
     Active Substance: NOREPINEPHRINE BITARTRATE
     Dates: start: 20190116, end: 20190116
  11. IMIPENEM AND CILASTATIN SODIUM [Concomitant]
     Active Substance: CILASTATIN SODIUM\IMIPENEM
     Dates: start: 20190117, end: 20190120
  12. POTASSIUM CHLORIDE [Concomitant]
     Active Substance: POTASSIUM CHLORIDE
     Dates: start: 20190118, end: 20190128
  13. ESOMEPRAZOLE SODIUM [Concomitant]
     Active Substance: ESOMEPRAZOLE SODIUM
     Dates: start: 20190118, end: 20190120
  14. DEZOCINE [Concomitant]
     Active Substance: DEZOCINE
     Dates: start: 20190118, end: 20190120
  15. THROMBIN [Concomitant]
     Active Substance: THROMBIN
     Dates: start: 20190118, end: 20190119
  16. STILAMIN [Concomitant]
     Dates: start: 20190118, end: 20190119
  17. BUPLEURUM [Concomitant]
     Dates: start: 20190119, end: 20190119
  18. ESOMEPRAZOLE MAGNESIUM [Concomitant]
     Active Substance: ESOMEPRAZOLE MAGNESIUM
     Dates: start: 20190121, end: 20190128
  19. CEFDINIR [Concomitant]
     Active Substance: CEFDINIR
     Dates: start: 20190121, end: 20190128
  20. PYROTINIB [Concomitant]
     Active Substance: PYROTINIB
     Indication: Neoplasm malignant
     Dates: start: 20190117, end: 20190412
  21. CAPECITABINE [Concomitant]
     Active Substance: CAPECITABINE
     Route: 048
     Dates: start: 20190117, end: 20190412

REACTIONS (1)
  - Urinary retention [Recovered/Resolved]

NARRATIVE: CASE EVENT DATE: 20190115
